FAERS Safety Report 24776947 (Version 1)
Quarter: 2024Q4

REPORT INFORMATION
  Report Type: Spontaneous
  Country: ES (occurrence: ES)
  Receive Date: 20241226
  Receipt Date: 20241226
  Transmission Date: 20250115
  Serious: Yes (Other)
  Sender: ALEXION PHARMACEUTICALS
  Company Number: None

PATIENT
  Age: 41 Year

DRUGS (7)
  1. LYNPARZA [Suspect]
     Active Substance: OLAPARIB
     Indication: Ovarian neoplasm
     Dosage: 300 MG EVERY 12H
  2. LYNPARZA [Suspect]
     Active Substance: OLAPARIB
     Dosage: 300 MG EVERY 12H
     Route: 048
  3. LYNPARZA [Suspect]
     Active Substance: OLAPARIB
     Dosage: 300 MG EVERY 12H
  4. LYNPARZA [Suspect]
     Active Substance: OLAPARIB
     Dosage: 300 MG EVERY 12H
     Route: 048
  5. BEVACIZUMAB [Concomitant]
     Active Substance: BEVACIZUMAB
     Indication: Ovarian neoplasm
     Dosage: CUMULATIVE DOSE 7,035 MG
     Route: 042
  6. BEVACIZUMAB [Concomitant]
     Active Substance: BEVACIZUMAB
     Dosage: CUMULATIVE DOSE 7,035 MG
  7. PACLITAXEL [Concomitant]
     Active Substance: PACLITAXEL
     Indication: Ovarian neoplasm
     Dosage: CUMULATIVE DOSE 1869 MG

REACTIONS (2)
  - Pulmonary thrombosis [Recovered/Resolved]
  - Venous thrombosis limb [Recovered/Resolved]
